FAERS Safety Report 9255232 (Version 7)
Quarter: 2013Q4

REPORT INFORMATION
  Report Type: Spontaneous
  Country: JP (occurrence: JP)
  Receive Date: 20130425
  Receipt Date: 20131010
  Transmission Date: 20140711
  Serious: Yes (Death, Life-Threatening, Hospitalization, Other)
  Sender: FDA-Public Use
  Company Number: JP-JNJFOC-20130412771

PATIENT
  Age: 32 Year
  Sex: Female
  Weight: 100 kg

DRUGS (20)
  1. TRAMCET [Suspect]
     Indication: BACK PAIN
     Route: 048
  2. TRAMCET [Suspect]
     Indication: BACK PAIN
     Route: 048
     Dates: start: 20130409, end: 20130409
  3. LYRICA [Suspect]
     Indication: BACK PAIN
     Dosage: 1 PER 1 DAY
     Route: 048
     Dates: start: 20130409, end: 20130409
  4. LYRICA [Suspect]
     Indication: BACK PAIN
     Route: 048
  5. CONTOMIN [Suspect]
     Indication: PRODUCT USED FOR UNKNOWN INDICATION
     Route: 065
  6. CYMBALTA [Concomitant]
     Indication: BIPOLAR DISORDER
     Dosage: ONCE DAILY
     Route: 065
     Dates: end: 20120409
  7. LACTULOSE [Concomitant]
     Indication: CONSTIPATION
     Dosage: 1.5 G ONCE DAILY
     Route: 048
     Dates: end: 20130409
  8. LAMICTAL [Concomitant]
     Indication: GENERALISED NON-CONVULSIVE EPILEPSY
     Dosage: ONCE DAILY
     Route: 048
     Dates: end: 20130409
  9. LEXAPRO [Concomitant]
     Indication: BIPOLAR DISORDER
     Dosage: ONCE DAILY
     Route: 048
     Dates: end: 20130409
  10. REFLEX (MIRTAZAPINE) [Concomitant]
     Indication: BIPOLAR DISORDER
     Dosage: ONCE DAILY
     Route: 048
     Dates: end: 20130409
  11. ESTAZOLAM [Concomitant]
     Indication: INSOMNIA
     Dosage: ONCE DAILY
     Route: 048
     Dates: end: 20130409
  12. FLUNITRAZEPAM [Concomitant]
     Indication: BIPOLAR DISORDER
     Dosage: ONCE DAILY
     Route: 048
     Dates: end: 20130409
  13. SELENICA-R [Concomitant]
     Indication: GENERALISED NON-CONVULSIVE EPILEPSY
     Dosage: ONCE DAILY
     Route: 048
     Dates: end: 20130409
  14. LITHIUM CARBONATE [Concomitant]
     Indication: BIPOLAR DISORDER
     Dosage: ONCE DAILY
     Route: 048
     Dates: end: 20130409
  15. PALGIN (ETIZOLAM) [Concomitant]
     Indication: BIPOLAR DISORDER
     Dosage: ONCE DAILY
     Route: 048
     Dates: end: 20130409
  16. ABILIFY [Concomitant]
     Indication: BIPOLAR DISORDER
     Dosage: ONCE DAILY
     Route: 048
     Dates: end: 20130409
  17. SENNARIDE [Concomitant]
     Indication: CONSTIPATION
     Dosage: 1.5 G ONCE DAILY
     Route: 048
     Dates: end: 20130409
  18. U-PAN (LORAZEPAM) [Concomitant]
     Indication: BIPOLAR DISORDER
     Dosage: ONCE DAILY
     Route: 048
     Dates: end: 20130409
  19. LEVEMIR [Concomitant]
     Indication: TYPE 1 DIABETES MELLITUS
     Dosage: ONCE DAILY
     Route: 058
  20. NOVORAPID [Concomitant]
     Indication: TYPE 1 DIABETES MELLITUS
     Dosage: ONCE DAILY
     Route: 058

REACTIONS (10)
  - Neuroleptic malignant syndrome [Fatal]
  - Rhabdomyolysis [Fatal]
  - Sepsis [Fatal]
  - Disseminated intravascular coagulation [Fatal]
  - Respiratory depression [Recovered/Resolved]
  - Intentional overdose [Unknown]
  - Loss of consciousness [Recovered/Resolved]
  - Suicide attempt [Unknown]
  - Toxicity to various agents [Not Recovered/Not Resolved]
  - Aspiration [Recovered/Resolved]
